FAERS Safety Report 4848580-6 (Version None)
Quarter: 2005Q4

REPORT INFORMATION
  Report Type: 
  Country: None (occurrence: None)
  Receive Date: 20051206
  Receipt Date: 20051128
  Transmission Date: 20060501
  Serious: Yes (Death, Life-Threatening, Other)
  Sender: FDA-Public Use
  Company Number: URSO 2005-018

PATIENT
  Age: 78 Year
  Sex: Female

DRUGS (6)
  1. URSODIOL [Suspect]
     Indication: BILIARY CIRRHOSIS PRIMARY
     Dosage: 300 MG
     Route: 048
     Dates: start: 20020416, end: 20040827
  2. ADECUT (DELAPRIL HYDROCHLORIDE) [Concomitant]
  3. MAGNESIUM OXIDE [Concomitant]
  4. VITAMEDIN BENFOTIAMINE, B6,B12) [Concomitant]
  5. HALCION [Concomitant]
  6. ANTIHYPERTENSIVES [Concomitant]

REACTIONS (4)
  - CEREBRAL HAEMORRHAGE [None]
  - CONVULSION [None]
  - GENERAL PHYSICAL HEALTH DETERIORATION [None]
  - LOSS OF CONSCIOUSNESS [None]
